FAERS Safety Report 6809693-2 (Version None)
Quarter: 2010Q2

REPORT INFORMATION
  Report Type: 
  Country: None (occurrence: None)
  Receive Date: 20100630
  Receipt Date: 20100623
  Transmission Date: 20101027
  Serious: Yes (Other)
  Sender: FDA-Public Use
  Company Number: US-GILEAD-2010-0028992

PATIENT
  Age: 51 Year
  Sex: Female

DRUGS (2)
  1. TRUVADA [Suspect]
     Indication: HIV INFECTION
     Dates: start: 20050101, end: 20100310
  2. FORTEO [Concomitant]

REACTIONS (2)
  - OSTEOPOROSIS [None]
  - RENAL FAILURE [None]
